FAERS Safety Report 7315693-9 (Version None)
Quarter: 2011Q1

REPORT INFORMATION
  Report Type: 
  Country: None (occurrence: None)
  Receive Date: 20110119
  Receipt Date: 20100524
  Transmission Date: 20110831
  Serious: No
  Sender: FDA-Public Use
  Company Number: A-US2010-36862

PATIENT
  Age: 76 Year
  Sex: Male

DRUGS (4)
  1. TRACLEER [Suspect]
     Indication: PULMONARY ARTERIAL HYPERTENSION
     Dosage: 62.5 MG, BID, ORAL, 125 MG, BID, ORAL, 125 MG, BID, ORAL
     Route: 048
     Dates: start: 20100401, end: 20100524
  2. TRACLEER [Suspect]
     Indication: PULMONARY ARTERIAL HYPERTENSION
     Dosage: 62.5 MG, BID, ORAL, 125 MG, BID, ORAL, 125 MG, BID, ORAL
     Route: 048
     Dates: start: 20100608, end: 20100623
  3. TRACLEER [Suspect]
     Indication: PULMONARY ARTERIAL HYPERTENSION
     Dosage: 62.5 MG, BID, ORAL, 125 MG, BID, ORAL, 125 MG, BID, ORAL
     Route: 048
     Dates: end: 20100331
  4. CALCIUM CHANNEL BLOCKERS [Concomitant]

REACTIONS (3)
  - ASPARTATE AMINOTRANSFERASE INCREASED [None]
  - BLOOD ALKALINE PHOSPHATASE INCREASED [None]
  - HEPATIC ENZYME INCREASED [None]
